FAERS Safety Report 17174061 (Version 3)
Quarter: 2020Q2

REPORT INFORMATION
  Report Type: Report from Study
  Country: US (occurrence: US)
  Receive Date: 20191218
  Receipt Date: 20200623
  Transmission Date: 20200713
  Serious: No
  Sender: FDA-Public Use
  Company Number: NVSC2019US022052

PATIENT
  Sex: Female

DRUGS (1)
  1. COSENTYX [Suspect]
     Active Substance: SECUKINUMAB
     Indication: PSORIASIS
     Dosage: 300 MG, QMO
     Route: 058
     Dates: start: 20190803

REACTIONS (6)
  - Skin fissures [Recovering/Resolving]
  - Skin swelling [Unknown]
  - Erythema [Unknown]
  - Tenderness [Unknown]
  - Drug ineffective [Not Recovered/Not Resolved]
  - Skin exfoliation [Unknown]
